FAERS Safety Report 5862987-X (Version None)
Quarter: 2008Q3

REPORT INFORMATION
  Report Type: 
  Country: None (occurrence: None)
  Receive Date: 20080828
  Receipt Date: 20080825
  Transmission Date: 20090109
  Serious: Yes (Other)
  Sender: FDA-Public Use
  Company Number: B0534641A

PATIENT
  Age: 53 Year
  Sex: Female
  Weight: 73 kg

DRUGS (7)
  1. LAPATINIB [Suspect]
     Indication: BREAST CANCER
     Dosage: 1500MG PER DAY
     Route: 048
     Dates: start: 20080610
  2. PACLITAXEL [Suspect]
     Indication: BREAST CANCER
     Dosage: 80MGM2 PER DAY
     Route: 042
     Dates: start: 20080723
  3. ERYFLUID [Concomitant]
     Indication: ACNE
     Route: 065
     Dates: start: 20080620
  4. TRITACE [Concomitant]
     Indication: HYPERTENSION
     Route: 065
  5. RIVOTRIL [Concomitant]
     Indication: HYPERTENSION
     Route: 065
  6. LETROX [Concomitant]
     Indication: HYPOTHYROIDISM
     Route: 065
  7. LEXAURIN [Concomitant]
     Route: 065
     Dates: start: 20080813

REACTIONS (3)
  - ALANINE AMINOTRANSFERASE INCREASED [None]
  - ASPARTATE AMINOTRANSFERASE INCREASED [None]
  - HEPATIC FUNCTION ABNORMAL [None]
